FAERS Safety Report 7063665-4 (Version None)
Quarter: 2010Q4

REPORT INFORMATION
  Report Type: 
  Country: None (occurrence: None)
  Receive Date: 20101026
  Receipt Date: 20100615
  Transmission Date: 20110411
  Serious: No
  Sender: FDA-Public Use
  Company Number: US-ABBOTT-10P-163-0652718-00

PATIENT
  Sex: Female
  Weight: 118.04 kg

DRUGS (3)
  1. LUPRON DEPOT [Suspect]
     Indication: ENDOMETRIOSIS
     Dates: start: 20100528
  2. TOPIRAMATE [Concomitant]
     Indication: EPILEPSY
  3. LEXAPRO [Concomitant]
     Indication: DEPRESSION

REACTIONS (2)
  - FATIGUE [None]
  - INSOMNIA [None]
